FAERS Safety Report 19854382 (Version 1)
Quarter: 2021Q3

REPORT INFORMATION
  Report Type: Report from Study
  Country: FR (occurrence: FR)
  Receive Date: 20210920
  Receipt Date: 20210920
  Transmission Date: 20211014
  Serious: Yes (Death, Hospitalization, Other)
  Sender: FDA-Public Use
  Company Number: FR-ACCORD-238870

PATIENT

DRUGS (3)
  1. OXALIPLATIN. [Suspect]
     Active Substance: OXALIPLATIN
     Indication: METASTASES TO PERITONEUM
     Dosage: PRESSURISED INTRAPERITONEAL AEROSOL CHEMOTHERAPY (PIPAC), 92MG/M2, 3 CYCLE
     Route: 033
  2. GLUCOSE [Concomitant]
     Active Substance: DEXTROSE
     Dosage: 5%
  3. BUPIVACAINE. [Concomitant]
     Active Substance: BUPIVACAINE

REACTIONS (2)
  - Multiple organ dysfunction syndrome [Fatal]
  - Ileus [Fatal]
